FAERS Safety Report 13775780 (Version 1)
Quarter: 2017Q3

REPORT INFORMATION
  Report Type: Spontaneous
  Country: US (occurrence: US)
  Receive Date: 20170721
  Receipt Date: 20170721
  Transmission Date: 20171127
  Serious: Yes (Death)
  Sender: FDA-Public Use
  Company Number: None

PATIENT
  Age: 49 Year
  Sex: Male
  Weight: 67.5 kg

DRUGS (1)
  1. LAMISIL [Suspect]
     Active Substance: TERBINAFINE HYDROCHLORIDE
     Indication: ONYCHOMYCOSIS
     Route: 048

REACTIONS (6)
  - Weight decreased [None]
  - Feeling of body temperature change [None]
  - Completed suicide [None]
  - Cold sweat [None]
  - Insomnia [None]
  - Asphyxia [None]

NARRATIVE: CASE EVENT DATE: 20160526
